FAERS Safety Report 25711272 (Version 1)
Quarter: 2025Q3

REPORT INFORMATION
  Report Type: Spontaneous
  Country: EU (occurrence: EU)
  Receive Date: 20250821
  Receipt Date: 20250821
  Transmission Date: 20251020
  Serious: Yes (Other)
  Sender: MYLAN
  Company Number: None

PATIENT
  Sex: Male

DRUGS (12)
  1. CLOZAPINE [Interacting]
     Active Substance: CLOZAPINE
     Indication: Product used for unknown indication
     Dosage: 600 MILLIGRAM, QD (24 HOURS)
     Dates: start: 20250530, end: 20250602
  2. CLOZAPINE [Interacting]
     Active Substance: CLOZAPINE
     Dosage: 600 MILLIGRAM, QD (24 HOURS)
     Route: 048
     Dates: start: 20250530, end: 20250602
  3. CLOZAPINE [Interacting]
     Active Substance: CLOZAPINE
     Dosage: 600 MILLIGRAM, QD (24 HOURS)
     Route: 048
     Dates: start: 20250530, end: 20250602
  4. CLOZAPINE [Interacting]
     Active Substance: CLOZAPINE
     Dosage: 600 MILLIGRAM, QD (24 HOURS)
     Dates: start: 20250530, end: 20250602
  5. LITHIUM CARBONATE [Interacting]
     Active Substance: LITHIUM CARBONATE
     Indication: Product used for unknown indication
     Dosage: 800 MILLIGRAM, QD (24 HOURS, 100 TABLETS)
     Dates: start: 20250530, end: 20250602
  6. LITHIUM CARBONATE [Interacting]
     Active Substance: LITHIUM CARBONATE
     Dosage: 800 MILLIGRAM, QD (24 HOURS, 100 TABLETS)
     Route: 048
     Dates: start: 20250530, end: 20250602
  7. LITHIUM CARBONATE [Interacting]
     Active Substance: LITHIUM CARBONATE
     Dosage: 800 MILLIGRAM, QD (24 HOURS, 100 TABLETS)
     Route: 048
     Dates: start: 20250530, end: 20250602
  8. LITHIUM CARBONATE [Interacting]
     Active Substance: LITHIUM CARBONATE
     Dosage: 800 MILLIGRAM, QD (24 HOURS, 100 TABLETS)
     Dates: start: 20250530, end: 20250602
  9. HALOPERIDOL [Interacting]
     Active Substance: HALOPERIDOL
     Indication: Product used for unknown indication
     Dosage: 10 MILLIGRAM, QD (24 HOURS)
     Dates: start: 20250530, end: 20250602
  10. HALOPERIDOL [Interacting]
     Active Substance: HALOPERIDOL
     Dosage: 10 MILLIGRAM, QD (24 HOURS)
     Route: 048
     Dates: start: 20250530, end: 20250602
  11. HALOPERIDOL [Interacting]
     Active Substance: HALOPERIDOL
     Dosage: 10 MILLIGRAM, QD (24 HOURS)
     Route: 048
     Dates: start: 20250530, end: 20250602
  12. HALOPERIDOL [Interacting]
     Active Substance: HALOPERIDOL
     Dosage: 10 MILLIGRAM, QD (24 HOURS)
     Dates: start: 20250530, end: 20250602

REACTIONS (3)
  - Depressed level of consciousness [Recovered/Resolved]
  - Medication error in transfer of care [Recovered/Resolved]
  - Wrong patient received product [Recovered/Resolved]

NARRATIVE: CASE EVENT DATE: 20250530
